FAERS Safety Report 6490449-8 (Version None)
Quarter: 2009Q4

REPORT INFORMATION
  Report Type: 
  Country: None (occurrence: None)
  Receive Date: 20091211
  Receipt Date: 20091203
  Transmission Date: 20100525
  Serious: Yes (Death)
  Sender: FDA-Public Use
  Company Number: US-SANOFI-AVENTIS-2009SA006045

PATIENT
  Age: 42 Year
  Sex: Male

DRUGS (2)
  1. LANTUS [Suspect]
     Dosage: DOSE:20 UNIT(S)
     Route: 058
     Dates: start: 20091001, end: 20091001
  2. INSULIN [Suspect]
     Route: 065
     Dates: end: 20091001

REACTIONS (1)
  - DEATH [None]
